FAERS Safety Report 16563129 (Version 1)
Quarter: 2019Q3

REPORT INFORMATION
  Report Type: Other
  Country: TR (occurrence: TR)
  Receive Date: 20190711
  Receipt Date: 20190711
  Transmission Date: 20191004
  Serious: Yes (Death)
  Sender: FDA-Public Use
  Company Number: TR-AGG-06-2018-0836

PATIENT
  Age: 38 Year
  Sex: Male

DRUGS (5)
  1. LOW MOLECULAR WEIGHT HEPARIN (LMWH) [Concomitant]
  2. HEPARIN [Concomitant]
     Active Substance: HEPARIN SODIUM
     Route: 022
  3. ASA [Concomitant]
     Active Substance: ASPIRIN
  4. PLAVIX [Concomitant]
     Active Substance: CLOPIDOGREL BISULFATE
  5. AGGRASTAT [Suspect]
     Active Substance: TIROFIBAN HYDROCHLORIDE
     Indication: ANTIPLATELET THERAPY
     Route: 022

REACTIONS (1)
  - Acute myocardial infarction [Fatal]
